FAERS Safety Report 17173471 (Version 1)
Quarter: 2019Q4

REPORT INFORMATION
  Report Type: Spontaneous
  Country: FR (occurrence: FR)
  Receive Date: 20191219
  Receipt Date: 20191219
  Transmission Date: 20200122
  Serious: Yes (Life-Threatening, Hospitalization)
  Sender: FDA-Public Use
  Company Number: FR-ELI_LILLY_AND_COMPANY-FR201912008462

PATIENT
  Age: 60 Year
  Sex: Female
  Weight: 47 kg

DRUGS (5)
  1. FLUOXETINE [Concomitant]
     Active Substance: FLUOXETINE HYDROCHLORIDE
  2. OLANZAPINE. [Suspect]
     Active Substance: OLANZAPINE
     Indication: SCHIZOPHRENIA
     Route: 048
     Dates: start: 20190815, end: 20191122
  3. THERALENE [Concomitant]
     Active Substance: TRIMEPRAZINE
  4. BRINTELLIX [Concomitant]
     Active Substance: VORTIOXETINE HYDROBROMIDE
  5. MACROGOL [Concomitant]
     Active Substance: POLYETHYLENE GLYCOLS

REACTIONS (2)
  - Cor pulmonale acute [Recovered/Resolved]
  - Pulmonary embolism [Recovered/Resolved]

NARRATIVE: CASE EVENT DATE: 20191122
